FAERS Safety Report 5304730-9 (Version None)
Quarter: 2007Q2

REPORT INFORMATION
  Report Type: 
  Country: None (occurrence: None)
  Receive Date: 20070423
  Receipt Date: 20070418
  Transmission Date: 20071010
  Serious: Yes (Hospitalization)
  Sender: FDA-Public Use
  Company Number: JP-BRISTOL-MYERS SQUIBB COMPANY-13745542

PATIENT
  Age: 87 Year
  Sex: Female

DRUGS (4)
  1. MAXIPIME [Suspect]
     Indication: CHOLANGITIS
     Route: 041
     Dates: start: 20070326, end: 20070328
  2. KN SOLUTION MG3 [Concomitant]
     Route: 041
     Dates: start: 20070326, end: 20070326
  3. VITAMEDIN [Concomitant]
     Route: 041
     Dates: start: 20070326, end: 20070326
  4. FULCALIQ 3 [Concomitant]
     Route: 041
     Dates: start: 20070327, end: 20070411

REACTIONS (3)
  - HAEMATURIA [None]
  - MUCOCUTANEOUS ULCERATION [None]
  - STEVENS-JOHNSON SYNDROME [None]
